FAERS Safety Report 25891555 (Version 2)
Quarter: 2025Q4

REPORT INFORMATION
  Report Type: Report from Study
  Country: US (occurrence: US)
  Receive Date: 20251007
  Receipt Date: 20251127
  Transmission Date: 20260118
  Serious: No
  Sender: ABBVIE
  Company Number: US-ABBVIE-6408337

PATIENT
  Age: 54 Year
  Sex: Female

DRUGS (1)
  1. RINVOQ [Suspect]
     Active Substance: UPADACITINIB
     Indication: Rheumatoid arthritis
     Route: 048
     Dates: start: 20250703

REACTIONS (9)
  - Arthralgia [Recovering/Resolving]
  - Shoulder fracture [Unknown]
  - Limb mass [Recovering/Resolving]
  - Joint swelling [Unknown]
  - Arthropathy [Unknown]
  - Insomnia [Recovering/Resolving]
  - White blood cell count decreased [Unknown]
  - Joint range of motion decreased [Recovering/Resolving]
  - Fatigue [Recovering/Resolving]

NARRATIVE: CASE EVENT DATE: 20250101
